FAERS Safety Report 10129826 (Version 2)
Quarter: 2015Q2

REPORT INFORMATION
  Report Type: Report from Study
  Country: BR (occurrence: BR)
  Receive Date: 20140428
  Receipt Date: 20150605
  Transmission Date: 20150821
  Serious: Yes (Hospitalization)
  Sender: FDA-Public Use
  Company Number: PHHY2014BR050099

PATIENT
  Sex: Female
  Weight: 40 kg

DRUGS (3)
  1. HYDREA [Suspect]
     Active Substance: HYDROXYUREA
     Indication: PRODUCT USED FOR UNKNOWN INDICATION
     Dosage: 3 DF DAILY
     Route: 065
  2. EXJADE [Suspect]
     Active Substance: DEFERASIROX
     Indication: SICKLE CELL ANAEMIA
     Dosage: 3 DF (40 MG/KG), QD
     Route: 048
  3. FOLIC ACID. [Suspect]
     Active Substance: FOLIC ACID
     Indication: PRODUCT USED FOR UNKNOWN INDICATION
     Dosage: 1 DF DAILY
     Route: 065

REACTIONS (6)
  - Sickle cell anaemia with crisis [Recovered/Resolved]
  - Pain [Recovered/Resolved]
  - Weight decreased [Unknown]
  - Malaise [Recovered/Resolved]
  - Urinary tract infection [Recovered/Resolved]
  - Abdominal pain upper [Unknown]
